FAERS Safety Report 24801829 (Version 1)
Quarter: 2025Q1

REPORT INFORMATION
  Report Type: Report from Study
  Country: IN (occurrence: IN)
  Receive Date: 20250102
  Receipt Date: 20250102
  Transmission Date: 20250409
  Serious: Yes (Death, Other)
  Sender: ALEXION PHARMACEUTICALS
  Company Number: IN-AstraZeneca-CH-00767795A

PATIENT
  Age: 63 Year

DRUGS (1)
  1. DURVALUMAB [Suspect]
     Active Substance: DURVALUMAB
     Indication: Chemotherapy
     Dosage: 1500 MILLIGRAM, Q3W

REACTIONS (2)
  - Death [Fatal]
  - Jaundice cholestatic [Unknown]
